FAERS Safety Report 24694408 (Version 1)
Quarter: 2024Q4

REPORT INFORMATION
  Report Type: Spontaneous
  Country: US (occurrence: US)
  Receive Date: 20241204
  Receipt Date: 20241204
  Transmission Date: 20250115
  Serious: No
  Sender: PACIRA
  Company Number: US-ORG100016242-2024000322

PATIENT
  Age: 61 Year
  Sex: Female
  Weight: 131.5 kg

DRUGS (1)
  1. ZILRETTA [Suspect]
     Active Substance: TRIAMCINOLONE ACETONIDE
     Indication: Arthralgia
     Dosage: DOSAGE UNKNOWN TO REPORTER
     Route: 014
     Dates: start: 202404, end: 202404

REACTIONS (3)
  - Recalled product administered [Unknown]
  - Drug ineffective [Unknown]
  - No adverse event [Unknown]

NARRATIVE: CASE EVENT DATE: 20240401
